FAERS Safety Report 13111950 (Version 2)
Quarter: 2017Q1

REPORT INFORMATION
  Report Type: Report from Study
  Country: US (occurrence: US)
  Receive Date: 20170113
  Receipt Date: 20170117
  Transmission Date: 20170428
  Serious: Yes (Hospitalization, Other)
  Sender: FDA-Public Use
  Company Number: US-009507513-2006SP006106

PATIENT

DRUGS (1)
  1. EPTIFIBATIDE. [Suspect]
     Active Substance: EPTIFIBATIDE
     Indication: PERCUTANEOUS CORONARY INTERVENTION
     Dosage: 20 MG, ONCE
     Route: 042

REACTIONS (4)
  - Blood creatine phosphokinase MB increased [Unknown]
  - Vascular stent thrombosis [Not Recovered/Not Resolved]
  - Cardiac tamponade [Unknown]
  - Chest pain [Unknown]
